FAERS Safety Report 8889341 (Version 1)
Quarter: 2012Q4

REPORT INFORMATION
  Report Type: Spontaneous
  Country: US (occurrence: None)
  Receive Date: 20121102
  Receipt Date: 20121102
  Transmission Date: 20130627
  Serious: Yes (Death, Other)
  Sender: FDA-Public Use
  Company Number: None

PATIENT
  Age: 89 Year
  Sex: Female
  Weight: 49.9 kg

DRUGS (1)
  1. PRADAXA [Suspect]
     Dosage: 1 capsule 2x daily po
     Route: 048
     Dates: start: 20120701, end: 20121028

REACTIONS (9)
  - Haemorrhage [None]
  - Pain [None]
  - Insomnia [None]
  - Hypotension [None]
  - Heart rate decreased [None]
  - Haematemesis [None]
  - Vomiting [None]
  - Constipation [None]
  - Abdominal pain upper [None]
